FAERS Safety Report 16329614 (Version 1)
Quarter: 2019Q2

REPORT INFORMATION
  Report Type: Spontaneous
  Country: FR (occurrence: FR)
  Receive Date: 20190520
  Receipt Date: 20190520
  Transmission Date: 20190711
  Serious: Yes (Other)
  Sender: FDA-Public Use
  Company Number: FR-ACCORD-128218

PATIENT
  Age: 88 Year
  Sex: Male

DRUGS (10)
  1. FOLIC ACID. [Concomitant]
     Active Substance: FOLIC ACID
     Route: 048
     Dates: end: 20190301
  2. RANITIDINE. [Concomitant]
     Active Substance: RANITIDINE
  3. EUPANTOL [Suspect]
     Active Substance: PANTOPRAZOLE SODIUM
     Indication: GASTROINTESTINAL HAEMORRHAGE
     Dosage: STRENGTH 40 MG
     Route: 048
     Dates: start: 20190124, end: 20190226
  4. ATORVASTATIN/ATORVASTATIN CALCIUM [Suspect]
     Active Substance: ATORVASTATIN CALCIUM
     Indication: DYSLIPIDAEMIA
     Route: 048
     Dates: end: 20190303
  5. CORDARONE [Suspect]
     Active Substance: AMIODARONE HYDROCHLORIDE
     Indication: ATRIAL FIBRILLATION
     Dosage: 300 MG / DAY IN IV ON THE 27/01/19 THEN 200 MG / DAY PER OS
     Dates: start: 20190127, end: 20190228
  6. XARELTO [Suspect]
     Active Substance: RIVAROXABAN
     Indication: THROMBOSIS PROPHYLAXIS
     Dosage: STRENGTH 20 MG
     Route: 048
     Dates: start: 20190212, end: 20190305
  7. VENTOLINE [Concomitant]
     Active Substance: ALBUTEROL
     Route: 055
     Dates: start: 20190124, end: 20190306
  8. ATROVENT [Concomitant]
     Active Substance: IPRATROPIUM BROMIDE
     Route: 055
     Dates: start: 20190124, end: 20190306
  9. TRUSOPT [Concomitant]
     Active Substance: DORZOLAMIDE HYDROCHLORIDE
     Route: 047
  10. DUOTRAV [Concomitant]
     Active Substance: TIMOLOL MALEATE\TRAVOPROST
     Dosage: STRENGTH 40 MICROGRAMS / ML + 5 MG / ML, EYE DROPS IN SOLUTION
     Route: 047

REACTIONS (1)
  - Thrombocytopenia [Recovering/Resolving]

NARRATIVE: CASE EVENT DATE: 20190220
